FAERS Safety Report 4447764-9 (Version None)
Quarter: 2004Q3

REPORT INFORMATION
  Report Type: 
  Country: None (occurrence: None)
  Receive Date: 20040913
  Receipt Date: 20040901
  Transmission Date: 20050211
  Serious: Yes (Hospitalization)
  Sender: FDA-Public Use
  Company Number: 200413258FR

PATIENT
  Age: 80 Year
  Sex: Female
  Weight: 86 kg

DRUGS (6)
  1. TRAMADOL HCL [Suspect]
     Route: 048
  2. FUROSEMIDE [Suspect]
     Route: 048
  3. ACEBUTOLOL [Suspect]
     Route: 048
  4. PREVISCAN [Suspect]
     Route: 048
  5. LYTOS [Suspect]
     Route: 048
     Dates: start: 20011215, end: 20040801
  6. ENALAPRIL [Suspect]
     Route: 048

REACTIONS (8)
  - BETA 2 MICROGLOBULIN INCREASED [None]
  - BETA GLOBULIN ABNORMAL [None]
  - BLOOD IMMUNOGLOBULIN A INCREASED [None]
  - BLOOD IMMUNOGLOBULIN G DECREASED [None]
  - BLOOD IMMUNOGLOBULIN M DECREASED [None]
  - BLOOD LACTATE DEHYDROGENASE INCREASED [None]
  - MONOCLONAL IMMUNOGLOBULIN PRESENT [None]
  - NEPHROTIC SYNDROME [None]
